FAERS Safety Report 24307895 (Version 1)
Quarter: 2024Q3

REPORT INFORMATION
  Report Type: Spontaneous
  Country: IN (occurrence: IN)
  Receive Date: 20240911
  Receipt Date: 20240911
  Transmission Date: 20241017
  Serious: Yes (Hospitalization)
  Sender: ROCHE
  Company Number: IN-ROCHE-10000028062

PATIENT
  Age: 66 Year
  Sex: Female
  Weight: 73.35 kg

DRUGS (1)
  1. TECENTRIQ [Suspect]
     Active Substance: ATEZOLIZUMAB
     Indication: Leiomyosarcoma recurrent
     Route: 042
     Dates: start: 20240204

REACTIONS (8)
  - Off label use [Unknown]
  - Pain in extremity [Unknown]
  - Peripheral swelling [Unknown]
  - Thrombophlebitis [Unknown]
  - Dermatitis [Unknown]
  - Panniculitis [Unknown]
  - Haemoglobin decreased [Unknown]
  - Lymphadenopathy [Unknown]
